FAERS Safety Report 15135227 (Version 8)
Quarter: 2019Q2

REPORT INFORMATION
  Report Type: Spontaneous
  Country: CA (occurrence: CA)
  Receive Date: 20180712
  Receipt Date: 20190531
  Transmission Date: 20190711
  Serious: Yes (Hospitalization, Other)
  Sender: FDA-Public Use
  Company Number: CA-CELLTRION INC.-2018CA021164

PATIENT

DRUGS (23)
  1. INFLECTRA [Suspect]
     Active Substance: INFLIXIMAB-DYYB
     Dosage: 600MG EVERY 4 WEEKS
     Route: 042
     Dates: start: 20180606
  2. INFLECTRA [Suspect]
     Active Substance: INFLIXIMAB-DYYB
     Dosage: 500 MG, 0, 2, 6, THEN MAINTENANCE EVERY 4 WEEKS
     Route: 042
     Dates: start: 20180813
  3. INFLECTRA [Suspect]
     Active Substance: INFLIXIMAB-DYYB
     Dosage: 500 MG, 0, 2, 6, THEN MAINTENANCE EVERY 4 WEEKS
     Route: 042
     Dates: start: 20190325
  4. INFLECTRA [Suspect]
     Active Substance: INFLIXIMAB-DYYB
     Dosage: 500 MG, 0, 2, 6, THEN MAINTENANCE EVERY 4 WEEKS
     Route: 042
     Dates: start: 20190521
  5. INFLECTRA [Suspect]
     Active Substance: INFLIXIMAB-DYYB
     Dosage: 500 MG, 0, 2, 6, THEN MAINTENANCE EVERY 4 WEEKS
     Route: 042
     Dates: start: 20180617
  6. PREDNISONE TEVA [Concomitant]
     Active Substance: PREDNISONE
     Dosage: 40 MG, 1X/DAY FOR 7 DAYS AND TAPER
  7. JAMP VITAMIN D [Concomitant]
     Dosage: 10000 IU, WEEKLY
     Route: 048
  8. INFLECTRA [Suspect]
     Active Substance: INFLIXIMAB-DYYB
     Dosage: 500 MG,0, 2, 6, THEN MAINTENANCE EVERY 4 WEEKS
     Route: 042
     Dates: start: 20180913
  9. INFLECTRA [Suspect]
     Active Substance: INFLIXIMAB-DYYB
     Dosage: 500 MG, 0, 2, 6, THEN MAINTENANCE EVERY 4 WEEKS
     Route: 042
     Dates: start: 20190128
  10. AZATHIOPRINE TEVA [Concomitant]
     Active Substance: AZATHIOPRINE
     Dosage: 50 MG, UNK
     Route: 065
     Dates: start: 20180601
  11. TEVA PREGABALIN [Concomitant]
     Active Substance: PREGABALIN
     Dosage: 50MG 1X/DAY AT NOON, AND 150MG 2X/DAY AT 7AM AND 9PM
     Route: 048
  12. INFLECTRA [Suspect]
     Active Substance: INFLIXIMAB-DYYB
     Dosage: 500 MG, 0, 2, 6, THEN MAINTENANCE EVERY 4 WEEKS
     Route: 042
     Dates: start: 20190423
  13. ALFUZOSIN SANDOZ [Concomitant]
     Active Substance: ALFUZOSIN
     Dosage: 10 MG, 1X/DAY
     Route: 048
  14. INFLECTRA [Suspect]
     Active Substance: INFLIXIMAB-DYYB
     Dosage: 500 MG,0, 2, 6, THEN MAINTENANCE EVERY 4 WEEKS
     Route: 042
     Dates: start: 20180913
  15. PREDNISONE TEVA [Concomitant]
     Active Substance: PREDNISONE
     Dosage: UNK
     Dates: start: 20190602
  16. INFLECTRA [Suspect]
     Active Substance: INFLIXIMAB-DYYB
     Indication: COLITIS ULCERATIVE
     Dosage: 500 MG, 0, 2, 6, THEN MAINTENANCE EVERY 4 WEEKS
     Route: 042
     Dates: start: 20180606
  17. SPIRIVA [Concomitant]
     Active Substance: TIOTROPIUM BROMIDE MONOHYDRATE
     Dosage: 18 MICROGRAM, 1X/DAY
  18. LORAZEPAM. [Concomitant]
     Active Substance: LORAZEPAM
     Indication: INSOMNIA
     Dosage: TAKE 1/2 TABLET OF 0.5MG AT BEDTIME AS NEEDED
     Route: 048
  19. INFLECTRA [Suspect]
     Active Substance: INFLIXIMAB-DYYB
     Dosage: 500 MG, 0, 2, 6, THEN MAINTENANCE EVERY 4 WEEKS
     Route: 042
     Dates: start: 20181009
  20. JAMP NYSTATIN [Concomitant]
     Dosage: RINSE MOUTH FOUR TIMES A DAY FOR 7 DAYS
  21. ALENDRONATE SANDOZ [Concomitant]
     Active Substance: ALENDRONATE SODIUM
     Indication: OSTEOPOROSIS
     Dosage: 70 MG, WEEKLY
     Route: 048
  22. JAMP CALCIUM [Concomitant]
     Dosage: 500 MG, 1X/DAY
     Route: 048
  23. INFLECTRA [Suspect]
     Active Substance: INFLIXIMAB-DYYB
     Dosage: 500 MG, 0, 2, 6, THEN MAINTENANCE EVERY 4 WEEKS
     Route: 042
     Dates: start: 20180716

REACTIONS (11)
  - Testicular disorder [Unknown]
  - Off label use [Unknown]
  - Erythema [Unknown]
  - Urinary tract infection [Unknown]
  - Chills [Not Recovered/Not Resolved]
  - Product use issue [Unknown]
  - Product use issue [Unknown]
  - Condition aggravated [Recovering/Resolving]
  - Joint swelling [Unknown]
  - Weight increased [Recovering/Resolving]
  - C-reactive protein increased [Unknown]

NARRATIVE: CASE EVENT DATE: 20180606
